FAERS Safety Report 16633088 (Version 1)
Quarter: 2019Q3

REPORT INFORMATION
  Report Type: Spontaneous
  Country: DE (occurrence: DE)
  Receive Date: 20190725
  Receipt Date: 20190725
  Transmission Date: 20191004
  Serious: Yes (Death, Hospitalization)
  Sender: FDA-Public Use
  Company Number: DE-PFIZER INC-2019310409

PATIENT
  Age: 96 Year
  Sex: Male

DRUGS (3)
  1. PROMETHAZINE [Concomitant]
     Active Substance: PROMETHAZINE HYDROCHLORIDE
     Dosage: 25 MG, AS NEEDED
  2. PREGABALIN. [Suspect]
     Active Substance: PREGABALIN
     Dosage: 50 MG, UNK 1-1-1-0
  3. RAMIPRIL. [Concomitant]
     Active Substance: RAMIPRIL
     Dosage: 2.5 MG, UNK 1-0-0-0

REACTIONS (4)
  - Hallucination [Unknown]
  - Death [Fatal]
  - Personality change [Unknown]
  - Aggression [Unknown]

NARRATIVE: CASE EVENT DATE: 20170521
